FAERS Safety Report 20628671 (Version 2)
Quarter: 2022Q2

REPORT INFORMATION
  Report Type: Report from Study
  Country: CZ (occurrence: CZ)
  Receive Date: 20220323
  Receipt Date: 20220405
  Transmission Date: 20220720
  Serious: Yes (Hospitalization)
  Sender: FDA-Public Use
  Company Number: CZ-TEVA-2022-CZ-2018798

PATIENT
  Age: 77 Year
  Sex: Female

DRUGS (5)
  1. FELODIPINE [Suspect]
     Active Substance: FELODIPINE
     Indication: Hypertension
     Dosage: 10 MILLIGRAM DAILY;
     Route: 065
  2. BISOPROLOL [Suspect]
     Active Substance: BISOPROLOL
     Indication: Hypertension
     Dosage: 2.5 MILLIGRAM DAILY;
     Route: 065
  3. ASPIRIN [Suspect]
     Active Substance: ASPIRIN
     Indication: Antiplatelet therapy
     Dosage: 100 MILLIGRAM DAILY;
     Route: 048
  4. LOSARTAN [Suspect]
     Active Substance: LOSARTAN
     Indication: Hypertension
     Dosage: 50 MILLIGRAM DAILY;
     Route: 065
  5. ATORVASTATIN [Concomitant]
     Active Substance: ATORVASTATIN
     Indication: Dyslipidaemia
     Dosage: 20 MILLIGRAM DAILY;
     Route: 065

REACTIONS (2)
  - Spinal epidural haematoma [Recovering/Resolving]
  - Spinal cord compression [Recovering/Resolving]
